FAERS Safety Report 8918272 (Version 3)
Quarter: 2014Q2

REPORT INFORMATION
  Report Type: Spontaneous
  Country: US (occurrence: US)
  Receive Date: 20121120
  Receipt Date: 20140401
  Transmission Date: 20141212
  Serious: No
  Sender: FDA-Public Use
  Company Number: US-ASTRAZENECA-2012SE25246

PATIENT
  Age: 77 Year
  Sex: Male
  Weight: 85.3 kg

DRUGS (15)
  1. NEXIUM [Suspect]
     Indication: ULCER
     Dosage: ONE IN THE MORNING AND ONE AT NOON
     Route: 048
  2. NEXIUM [Suspect]
     Indication: ABDOMINAL PAIN UPPER
     Dosage: ONE IN THE MORNING AND ONE AT NOON
     Route: 048
  3. NEXIUM [Suspect]
     Indication: EROSIVE OESOPHAGITIS
     Dosage: ONE IN THE MORNING AND ONE AT NOON
     Route: 048
  4. NEXIUM [Suspect]
     Indication: ULCER
     Route: 048
     Dates: start: 201203, end: 201204
  5. NEXIUM [Suspect]
     Indication: ABDOMINAL PAIN UPPER
     Route: 048
     Dates: start: 201203, end: 201204
  6. NEXIUM [Suspect]
     Indication: EROSIVE OESOPHAGITIS
     Route: 048
     Dates: start: 201203, end: 201204
  7. NEXIUM [Suspect]
     Indication: ULCER
     Route: 048
     Dates: start: 201305, end: 20130722
  8. NEXIUM [Suspect]
     Indication: ABDOMINAL PAIN UPPER
     Route: 048
     Dates: start: 201305, end: 20130722
  9. NEXIUM [Suspect]
     Indication: EROSIVE OESOPHAGITIS
     Route: 048
     Dates: start: 201305, end: 20130722
  10. NEXIUM [Suspect]
     Indication: ULCER
     Route: 048
     Dates: start: 201307, end: 20130727
  11. NEXIUM [Suspect]
     Indication: ABDOMINAL PAIN UPPER
     Route: 048
     Dates: start: 201307, end: 20130727
  12. NEXIUM [Suspect]
     Indication: EROSIVE OESOPHAGITIS
     Route: 048
     Dates: start: 201307, end: 20130727
  13. LISINOPRIL HCTZ [Concomitant]
     Indication: HYPERTENSION
     Dates: start: 2012
  14. SPIRONOLACTONE [Concomitant]
     Indication: HYPERTENSION
  15. TERAZOSIN [Concomitant]

REACTIONS (9)
  - Asthenia [Unknown]
  - Weight decreased [Unknown]
  - Decreased appetite [Unknown]
  - Abdominal pain upper [Unknown]
  - Diarrhoea [Recovered/Resolved]
  - Flatulence [Not Recovered/Not Resolved]
  - Constipation [Not Recovered/Not Resolved]
  - Off label use [Unknown]
  - Intentional product misuse [Unknown]
